FAERS Safety Report 18935272 (Version 2)
Quarter: 2021Q1

REPORT INFORMATION
  Report Type: Report from Study
  Country: US (occurrence: US)
  Receive Date: 20210224
  Receipt Date: 20210308
  Transmission Date: 20210420
  Serious: No
  Sender: FDA-Public Use
  Company Number: US-HRARD-202000917

PATIENT
  Sex: Male

DRUGS (2)
  1. LYSODREN [Suspect]
     Active Substance: MITOTANE
     Indication: ADRENAL GLAND CANCER
     Dosage: CURRENT DOSE TAKEN 06 TABLETS DAILY (INSTEAD OF THE PRESCRIBED DOSE OF 06 TABLETS BID)
     Route: 048
     Dates: start: 2020
  2. LYSODREN [Suspect]
     Active Substance: MITOTANE
     Indication: ADRENAL GLAND CANCER
     Dosage: UNSPECIFIED START DOSE
     Route: 048
     Dates: start: 20201014, end: 2020

REACTIONS (1)
  - Intentional underdose [Unknown]
